FAERS Safety Report 11347916 (Version 1)
Quarter: 2015Q3

REPORT INFORMATION
  Report Type: Spontaneous
  Country: US (occurrence: US)
  Receive Date: 20150803
  Receipt Date: 20150803
  Transmission Date: 20151125
  Serious: No
  Sender: FDA-Public Use
  Company Number: US-ELI_LILLY_AND_COMPANY-US201112001459

PATIENT
  Age: 42 Year
  Sex: Female

DRUGS (1)
  1. ZYPREXA [Suspect]
     Active Substance: OLANZAPINE
     Indication: NEURALGIA
     Dosage: 5 MG, UNK

REACTIONS (3)
  - Off label use [Unknown]
  - Breakthrough pain [Unknown]
  - Spinal disorder [Unknown]
